FAERS Safety Report 24616531 (Version 4)
Quarter: 2025Q2

REPORT INFORMATION
  Report Type: Spontaneous
  Country: CA (occurrence: CA)
  Receive Date: 20241114
  Receipt Date: 20250417
  Transmission Date: 20250716
  Serious: Yes (Life-Threatening, Hospitalization, Disabling, Other)
  Sender: BRISTOL MYERS SQUIBB
  Company Number: CA-BRISTOL-MYERS SQUIBB COMPANY-2024-172336

PATIENT
  Age: 40 Year
  Sex: Female
  Weight: 73 kg

DRUGS (192)
  1. ORENCIA [Suspect]
     Active Substance: ABATACEPT
     Indication: Rheumatoid arthritis
     Route: 058
  2. ORENCIA [Suspect]
     Active Substance: ABATACEPT
     Indication: Rheumatoid arthritis
  3. ORENCIA [Suspect]
     Active Substance: ABATACEPT
  4. ORENCIA [Suspect]
     Active Substance: ABATACEPT
     Indication: Rheumatoid arthritis
     Route: 040
  5. ORENCIA [Suspect]
     Active Substance: ABATACEPT
     Route: 040
  6. ORENCIA [Suspect]
     Active Substance: ABATACEPT
     Route: 042
  7. VITAMIN C [Concomitant]
     Active Substance: ASCORBIC ACID
     Indication: Product used for unknown indication
  8. LISINOPRIL [Concomitant]
     Active Substance: LISINOPRIL
     Indication: Product used for unknown indication
  9. IBUPROFEN [Concomitant]
     Active Substance: IBUPROFEN
     Indication: Product used for unknown indication
  10. ALENDRONIC ACID [Concomitant]
     Active Substance: ALENDRONIC ACID
     Indication: Rheumatoid arthritis
     Route: 048
  11. ACETAMINOPHEN [Concomitant]
     Active Substance: ACETAMINOPHEN
     Indication: Product used for unknown indication
  12. ACTEMRA [Concomitant]
     Active Substance: TOCILIZUMAB
     Indication: Rheumatoid arthritis
     Route: 040
  13. ACTEMRA [Concomitant]
     Active Substance: TOCILIZUMAB
     Route: 058
  14. ACTEMRA [Concomitant]
     Active Substance: TOCILIZUMAB
  15. ACTEMRA [Concomitant]
     Active Substance: TOCILIZUMAB
     Route: 042
  16. ACTEMRA [Concomitant]
     Active Substance: TOCILIZUMAB
     Route: 058
  17. ACTEMRA [Concomitant]
     Active Substance: TOCILIZUMAB
     Route: 058
  18. ACTEMRA [Concomitant]
     Active Substance: TOCILIZUMAB
     Route: 040
  19. ACTEMRA [Concomitant]
     Active Substance: TOCILIZUMAB
     Route: 042
  20. ACTEMRA [Concomitant]
     Active Substance: TOCILIZUMAB
  21. ACTEMRA [Concomitant]
     Active Substance: TOCILIZUMAB
     Route: 040
  22. ACTEMRA [Concomitant]
     Active Substance: TOCILIZUMAB
  23. ACTEMRA [Concomitant]
     Active Substance: TOCILIZUMAB
     Route: 040
  24. ADALIMUMAB [Concomitant]
     Active Substance: ADALIMUMAB
     Indication: Rheumatoid arthritis
     Route: 058
  25. AIMOVIG [Concomitant]
     Active Substance: ERENUMAB-AOOE
     Indication: Migraine
  26. ALENDRONATE SODIUM [Concomitant]
     Active Substance: ALENDRONATE SODIUM
     Indication: Product used for unknown indication
  27. LEFLUNOMIDE [Concomitant]
     Active Substance: LEFLUNOMIDE
     Indication: Rheumatoid arthritis
     Route: 048
  28. LEFLUNOMIDE [Concomitant]
     Active Substance: LEFLUNOMIDE
     Route: 048
  29. LEFLUNOMIDE [Concomitant]
     Active Substance: LEFLUNOMIDE
     Route: 048
  30. PREDNISONE [Concomitant]
     Active Substance: PREDNISONE
     Indication: Rheumatoid arthritis
     Route: 048
  31. PREDNISONE [Concomitant]
     Active Substance: PREDNISONE
     Route: 048
  32. PREDNISONE [Concomitant]
     Active Substance: PREDNISONE
  33. ARAVA [Concomitant]
     Active Substance: LEFLUNOMIDE
     Indication: Rheumatoid arthritis
     Route: 048
  34. AZATHIOPRINE [Concomitant]
     Active Substance: AZATHIOPRINE
     Indication: Product used for unknown indication
  35. CETIRIZINE [Concomitant]
     Active Substance: CETIRIZINE HYDROCHLORIDE
     Indication: Rheumatoid arthritis
     Route: 048
  36. CETIRIZINE [Concomitant]
     Active Substance: CETIRIZINE HYDROCHLORIDE
     Route: 048
  37. CETIRIZINE [Concomitant]
     Active Substance: CETIRIZINE HYDROCHLORIDE
  38. CHLORHEXIDINE GLUCONATE [Concomitant]
     Active Substance: CHLORHEXIDINE GLUCONATE
     Indication: Product used for unknown indication
     Route: 002
  39. CIMZIA [Concomitant]
     Active Substance: CERTOLIZUMAB PEGOL
     Indication: Rheumatoid arthritis
     Route: 058
  40. CIMZIA [Concomitant]
     Active Substance: CERTOLIZUMAB PEGOL
     Route: 058
  41. CORTISONE ACETATE [Concomitant]
     Active Substance: CORTISONE ACETATE
     Indication: Rheumatoid arthritis
     Route: 061
  42. COSENTYX [Concomitant]
     Active Substance: SECUKINUMAB
     Indication: Rheumatoid arthritis
  43. COSENTYX [Concomitant]
     Active Substance: SECUKINUMAB
     Indication: Psoriatic arthropathy
  44. DESOGESTREL\ETHINYL ESTRADIOL [Concomitant]
     Active Substance: DESOGESTREL\ETHINYL ESTRADIOL
     Indication: Product used for unknown indication
  45. DESOXIMETASONE [Concomitant]
     Active Substance: DESOXIMETASONE
     Indication: Rheumatoid arthritis
     Route: 048
  46. DESOXIMETASONE [Concomitant]
     Active Substance: DESOXIMETASONE
     Route: 058
  47. DICLOFENAC SODIUM [Concomitant]
     Active Substance: DICLOFENAC SODIUM
     Indication: Product used for unknown indication
  48. ENBREL [Concomitant]
     Active Substance: ETANERCEPT
     Indication: Rheumatoid arthritis
     Route: 058
  49. ENBREL [Concomitant]
     Active Substance: ETANERCEPT
  50. ENBREL [Concomitant]
     Active Substance: ETANERCEPT
  51. ENBREL [Concomitant]
     Active Substance: ETANERCEPT
     Route: 058
  52. ENBREL [Concomitant]
     Active Substance: ETANERCEPT
     Route: 058
  53. ENBREL [Concomitant]
     Active Substance: ETANERCEPT
     Route: 058
  54. FOLIC ACID [Concomitant]
     Active Substance: FOLIC ACID
     Indication: Product used for unknown indication
     Route: 048
  55. FOLIC ACID [Concomitant]
     Active Substance: FOLIC ACID
  56. FOLIC ACID [Concomitant]
     Active Substance: FOLIC ACID
     Route: 048
  57. FOLIC ACID [Concomitant]
     Active Substance: FOLIC ACID
     Route: 048
  58. FOLIC ACID [Concomitant]
     Active Substance: FOLIC ACID
     Route: 058
  59. FOLIC ACID [Concomitant]
     Active Substance: FOLIC ACID
  60. FOLIC ACID [Concomitant]
     Active Substance: FOLIC ACID
     Route: 048
  61. FOSAMAX [Concomitant]
     Active Substance: ALENDRONATE SODIUM
     Indication: Rheumatoid arthritis
     Route: 048
  62. GOLD [Concomitant]
     Active Substance: GOLD
     Indication: Product used for unknown indication
  63. HYDROCORTISONE [Concomitant]
     Active Substance: HYDROCORTISONE
     Indication: Rheumatoid arthritis
  64. HYDROXYCHLOROQUINE [Concomitant]
     Active Substance: HYDROXYCHLOROQUINE
     Indication: Product used for unknown indication
  65. HYDROXYCHLOROQUINE SULFATE [Concomitant]
     Active Substance: HYDROXYCHLOROQUINE SULFATE
     Indication: Rheumatoid arthritis
  66. HYDROXYCHLOROQUINE SULFATE [Concomitant]
     Active Substance: HYDROXYCHLOROQUINE SULFATE
     Route: 048
  67. HYDROXYCHLOROQUINE SULFATE [Concomitant]
     Active Substance: HYDROXYCHLOROQUINE SULFATE
  68. HYDROXYCHLOROQUINE SULFATE [Concomitant]
     Active Substance: HYDROXYCHLOROQUINE SULFATE
     Route: 048
  69. HYDROXYCHLOROQUINE SULFATE [Concomitant]
     Active Substance: HYDROXYCHLOROQUINE SULFATE
     Route: 048
  70. INFLIXIMAB [Concomitant]
     Active Substance: INFLIXIMAB
     Indication: Rheumatoid arthritis
     Route: 040
  71. LEFLUNOMIDE [Concomitant]
     Active Substance: LEFLUNOMIDE
     Indication: Rheumatoid arthritis
  72. LEFLUNOMIDE [Concomitant]
     Active Substance: LEFLUNOMIDE
     Route: 048
  73. LEFLUNOMIDE [Concomitant]
     Active Substance: LEFLUNOMIDE
  74. CLIOQUINOL\FLUMETHASONE [Concomitant]
     Active Substance: CLIOQUINOL\FLUMETHASONE
     Indication: Product used for unknown indication
     Route: 058
  75. METHOTREXATE [Concomitant]
     Active Substance: METHOTREXATE
     Indication: Rheumatoid arthritis
     Route: 058
  76. METHOTREXATE [Concomitant]
     Active Substance: METHOTREXATE
     Route: 058
  77. METHOTREXATE [Concomitant]
     Active Substance: METHOTREXATE
     Route: 048
  78. METHOTREXATE [Concomitant]
     Active Substance: METHOTREXATE
     Route: 058
  79. METHOTREXATE [Concomitant]
     Active Substance: METHOTREXATE
     Route: 048
  80. METHOTREXATE [Concomitant]
     Active Substance: METHOTREXATE
     Route: 048
  81. METHOTREXATE [Concomitant]
     Active Substance: METHOTREXATE
  82. METHOTREXATE [Concomitant]
     Active Substance: METHOTREXATE
     Route: 048
  83. METHYLPREDNISOLONE [Concomitant]
     Active Substance: METHYLPREDNISOLONE
     Indication: Product used for unknown indication
  84. MINOCYCLINE [Concomitant]
     Active Substance: MINOCYCLINE HYDROCHLORIDE
     Indication: Rheumatoid arthritis
  85. MYOCHRYSINE [Concomitant]
     Active Substance: GOLD SODIUM THIOMALATE
     Indication: Rheumatoid arthritis
     Route: 030
  86. NAPROXEN [Concomitant]
     Active Substance: NAPROXEN
     Indication: Rheumatoid arthritis
  87. OTEZLA [Concomitant]
     Active Substance: APREMILAST
     Indication: Rheumatoid arthritis
  88. PHTHALYLSULFATHIAZOLE [Concomitant]
     Active Substance: PHTHALYLSULFATHIAZOLE
     Indication: Product used for unknown indication
     Route: 058
  89. PHTHALYLSULFATHIAZOLE [Concomitant]
     Active Substance: PHTHALYLSULFATHIAZOLE
     Route: 048
  90. PHTHALYLSULFATHIAZOLE [Concomitant]
     Active Substance: PHTHALYLSULFATHIAZOLE
  91. PHTHALYLSULFATHIAZOLE [Concomitant]
     Active Substance: PHTHALYLSULFATHIAZOLE
     Route: 048
  92. PHTHALYLSULFATHIAZOLE [Concomitant]
     Active Substance: PHTHALYLSULFATHIAZOLE
     Route: 048
  93. PHTHALYLSULFATHIAZOLE [Concomitant]
     Active Substance: PHTHALYLSULFATHIAZOLE
  94. PREDNISONE [Concomitant]
     Active Substance: PREDNISONE
     Indication: Rheumatoid arthritis
  95. PREDNISONE [Concomitant]
     Active Substance: PREDNISONE
  96. PREDNISONE [Concomitant]
     Active Substance: PREDNISONE
     Route: 048
  97. PREDNISONE [Concomitant]
     Active Substance: PREDNISONE
  98. PREDNISONE [Concomitant]
     Active Substance: PREDNISONE
     Route: 048
  99. PSEUDOEPHEDRINE HYDROCHLORIDE [Concomitant]
     Active Substance: PSEUDOEPHEDRINE HYDROCHLORIDE
     Indication: Rheumatoid arthritis
  100. PSEUDOEPHEDRINE HYDROCHLORIDE [Concomitant]
     Active Substance: PSEUDOEPHEDRINE HYDROCHLORIDE
  101. PSEUDOEPHEDRINE HYDROCHLORIDE [Concomitant]
     Active Substance: PSEUDOEPHEDRINE HYDROCHLORIDE
  102. PSEUDOEPHEDRINE HYDROCHLORIDE [Concomitant]
     Active Substance: PSEUDOEPHEDRINE HYDROCHLORIDE
  103. REMICADE [Concomitant]
     Active Substance: INFLIXIMAB
     Indication: Rheumatoid arthritis
     Route: 058
  104. REMICADE [Concomitant]
     Active Substance: INFLIXIMAB
  105. REMICADE [Concomitant]
     Active Substance: INFLIXIMAB
     Route: 040
  106. REMICADE [Concomitant]
     Active Substance: INFLIXIMAB
     Route: 040
  107. REMICADE [Concomitant]
     Active Substance: INFLIXIMAB
     Route: 043
  108. REMICADE [Concomitant]
     Active Substance: INFLIXIMAB
     Route: 040
  109. REMICADE [Concomitant]
     Active Substance: INFLIXIMAB
     Route: 040
  110. REMICADE [Concomitant]
     Active Substance: INFLIXIMAB
     Dosage: POWDER FOR SOLUTION INTRAVENOUS
     Route: 040
  111. REMICADE [Concomitant]
     Active Substance: INFLIXIMAB
     Route: 042
  112. RITUXIMAB [Concomitant]
     Active Substance: RITUXIMAB
     Indication: Rheumatoid arthritis
     Route: 040
  113. RITUXIMAB [Concomitant]
     Active Substance: RITUXIMAB
     Route: 040
  114. RITUXIMAB [Concomitant]
     Active Substance: RITUXIMAB
     Route: 040
  115. RITUXIMAB [Concomitant]
     Active Substance: RITUXIMAB
     Route: 043
  116. RITUXIMAB [Concomitant]
     Active Substance: RITUXIMAB
     Route: 058
  117. RITUXIMAB [Concomitant]
     Active Substance: RITUXIMAB
     Route: 040
  118. RITUXIMAB [Concomitant]
     Active Substance: RITUXIMAB
  119. RITUXIMAB [Concomitant]
     Active Substance: RITUXIMAB
     Route: 058
  120. RITUXIMAB [Concomitant]
     Active Substance: RITUXIMAB
  121. RITUXIMAB [Concomitant]
     Active Substance: RITUXIMAB
     Route: 040
  122. RITUXIMAB [Concomitant]
     Active Substance: RITUXIMAB
     Route: 040
  123. RITUXIMAB [Concomitant]
     Active Substance: RITUXIMAB
  124. RITUXIMAB [Concomitant]
     Active Substance: RITUXIMAB
     Route: 040
  125. RITUXIMAB [Concomitant]
     Active Substance: RITUXIMAB
     Route: 040
  126. RITUXIMAB [Concomitant]
     Active Substance: RITUXIMAB
     Route: 040
  127. RITUXIMAB [Concomitant]
     Active Substance: RITUXIMAB
     Route: 040
  128. RITUXIMAB [Concomitant]
     Active Substance: RITUXIMAB
     Route: 040
  129. SULFASALAZINE [Concomitant]
     Active Substance: SULFASALAZINE
     Indication: Rheumatoid arthritis
  130. SULFASALAZINE [Concomitant]
     Active Substance: SULFASALAZINE
     Route: 058
  131. SIMPONI [Concomitant]
     Active Substance: GOLIMUMAB
     Indication: Rheumatoid arthritis
     Route: 058
  132. SIRUKUMAB [Concomitant]
     Active Substance: SIRUKUMAB
     Indication: Product used for unknown indication
  133. GOLD SODIUM THIOMALATE [Concomitant]
     Active Substance: GOLD SODIUM THIOMALATE
     Indication: Product used for unknown indication
     Route: 048
  134. GOLD SODIUM THIOMALATE [Concomitant]
     Active Substance: GOLD SODIUM THIOMALATE
     Route: 030
  135. SULFAMETHOXAZOLE AND TRIMETHOPRIM [Concomitant]
     Active Substance: SULFAMETHOXAZOLE\TRIMETHOPRIM
     Indication: Rheumatoid arthritis
     Route: 048
  136. SULFAMETHOXAZOLE AND TRIMETHOPRIM [Concomitant]
     Active Substance: SULFAMETHOXAZOLE\TRIMETHOPRIM
     Route: 048
  137. SULFASALAZINE [Concomitant]
     Active Substance: SULFASALAZINE
     Indication: Rheumatoid arthritis
  138. SULFASALAZINE [Concomitant]
     Active Substance: SULFASALAZINE
     Route: 058
  139. SULFASALAZINE [Concomitant]
     Active Substance: SULFASALAZINE
     Route: 048
  140. SULFASALAZINE [Concomitant]
     Active Substance: SULFASALAZINE
     Route: 048
  141. SULFASALAZINE [Concomitant]
     Active Substance: SULFASALAZINE
  142. SULFASALAZINE [Concomitant]
     Active Substance: SULFASALAZINE
     Route: 048
  143. SULFASALAZINE [Concomitant]
     Active Substance: SULFASALAZINE
     Route: 048
  144. SULFASALAZINE [Concomitant]
     Active Substance: SULFASALAZINE
     Route: 058
  145. SULFASALAZINE [Concomitant]
     Active Substance: SULFASALAZINE
  146. SULFASALAZINE [Concomitant]
     Active Substance: SULFASALAZINE
     Route: 048
  147. SULFASALAZINE [Concomitant]
     Active Substance: SULFASALAZINE
     Route: 048
  148. TRAMADOL HYDROCHLORIDE [Concomitant]
     Active Substance: TRAMADOL HYDROCHLORIDE
     Indication: Product used for unknown indication
  149. XELJANZ [Concomitant]
     Active Substance: TOFACITINIB CITRATE
     Indication: Rheumatoid arthritis
  150. XELJANZ [Concomitant]
     Active Substance: TOFACITINIB CITRATE
     Route: 048
  151. XELJANZ [Concomitant]
     Active Substance: TOFACITINIB CITRATE
     Route: 048
  152. XELJANZ [Concomitant]
     Active Substance: TOFACITINIB CITRATE
     Route: 048
  153. CORTISONE (HYDROCORTISONE) [Concomitant]
     Active Substance: HYDROCORTISONE
     Indication: Product used for unknown indication
     Route: 048
  154. ERELZI [Concomitant]
     Active Substance: ETANERCEPT-SZZS
     Indication: Rheumatoid arthritis
     Route: 058
  155. ERELZI [Concomitant]
     Active Substance: ETANERCEPT-SZZS
     Route: 058
  156. FLUMETHASONE [Concomitant]
     Active Substance: FLUMETHASONE
     Indication: Product used for unknown indication
     Route: 058
  157. HUMIRA [Concomitant]
     Active Substance: ADALIMUMAB
     Indication: Rheumatoid arthritis
     Dosage: SOLUTION SUBCUTANEOUS
     Route: 058
  158. KEVZARA [Concomitant]
     Active Substance: SARILUMAB
     Indication: Rheumatoid arthritis
  159. PANTOPRAZOLE SODIUM ANHYDROUS [Concomitant]
     Active Substance: PANTOPRAZOLE SODIUM ANHYDROUS
     Indication: Product used for unknown indication
  160. ATIVAN [Concomitant]
     Active Substance: LORAZEPAM
     Indication: Anxiety
  161. CAFFEINE [Concomitant]
     Active Substance: CAFFEINE
     Indication: Product used for unknown indication
  162. CELECOXIB [Concomitant]
     Active Substance: CELECOXIB
     Indication: Rheumatoid arthritis
  163. CELECOXIB [Concomitant]
     Active Substance: CELECOXIB
     Indication: Arthritis
  164. CERTOLIZUMAB PEGOL [Concomitant]
     Active Substance: CERTOLIZUMAB PEGOL
     Indication: Product used for unknown indication
  165. CETIRIZINE HYDROCHLORIDE [Concomitant]
     Active Substance: CETIRIZINE HYDROCHLORIDE
     Indication: Rheumatoid arthritis
  166. CHOLECALCIFEROL [Concomitant]
     Active Substance: CHOLECALCIFEROL
     Indication: Product used for unknown indication
  167. CYANOCOBALAMIN [Concomitant]
     Active Substance: CYANOCOBALAMIN
     Indication: Product used for unknown indication
  168. DESOXIMETASONE [Concomitant]
     Active Substance: DESOXIMETASONE
     Indication: Rheumatoid arthritis
  169. DICLOFENAC DIETHYLAMINE [Concomitant]
     Active Substance: DICLOFENAC DIETHYLAMINE
     Indication: Product used for unknown indication
  170. DOCONEXENT\ICOSAPENT [Concomitant]
     Active Substance: DOCONEXENT\ICOSAPENT
     Indication: Product used for unknown indication
  171. ELBASVIR [Concomitant]
     Active Substance: ELBASVIR
     Indication: Product used for unknown indication
  172. ERGOCALCIFEROL [Concomitant]
     Active Substance: ERGOCALCIFEROL
     Indication: Product used for unknown indication
  173. FLUMETHASONE PIVALATE [Concomitant]
     Active Substance: FLUMETHASONE PIVALATE
     Indication: Rheumatoid arthritis
     Route: 058
  174. IRON\VITAMINS [Concomitant]
     Active Substance: IRON\VITAMINS
     Indication: Rheumatoid arthritis
     Route: 048
  175. GLUCOSAMINE [Concomitant]
     Active Substance: GLUCOSAMINE
     Indication: Product used for unknown indication
  176. GOLIMUMAB [Concomitant]
     Active Substance: GOLIMUMAB
     Indication: Product used for unknown indication
  177. HYDROCORTISONE ACETATE [Concomitant]
     Active Substance: HYDROCORTISONE ACETATE
     Indication: Product used for unknown indication
     Route: 058
  178. ISOPROPYL ALCOHOL [Concomitant]
     Active Substance: ISOPROPYL ALCOHOL
     Indication: Product used for unknown indication
     Route: 061
  179. LANSOPRAZOLE [Concomitant]
     Active Substance: LANSOPRAZOLE
     Indication: Product used for unknown indication
  180. LORAZEPAM [Concomitant]
     Active Substance: LORAZEPAM
     Indication: Product used for unknown indication
  181. MAGNESIUM [Concomitant]
     Active Substance: MAGNESIUM
     Indication: Product used for unknown indication
  182. NAPROXEN SODIUM [Concomitant]
     Active Substance: NAPROXEN SODIUM
     Indication: Rheumatoid arthritis
  183. PANTOPRAZOLE SODIUM [Concomitant]
     Active Substance: PANTOPRAZOLE SODIUM
     Indication: Product used for unknown indication
  184. PHTHALYLSULFATHIAZOLE [Concomitant]
     Active Substance: PHTHALYLSULFATHIAZOLE
     Indication: Rheumatoid arthritis
     Route: 042
  185. QUETIAPINE FUMARATE [Concomitant]
     Active Substance: QUETIAPINE FUMARATE
     Indication: Product used for unknown indication
  186. RAMIPRIL [Concomitant]
     Active Substance: RAMIPRIL
     Indication: Product used for unknown indication
  187. CETIRIZINE HYDROCHLORIDE\PSEUDOEPHEDRINE HYDROCHLORIDE [Concomitant]
     Active Substance: CETIRIZINE HYDROCHLORIDE\PSEUDOEPHEDRINE HYDROCHLORIDE
     Indication: Rheumatoid arthritis
  188. RISEDRONATE SODIUM [Concomitant]
     Active Substance: RISEDRONATE SODIUM
     Indication: Product used for unknown indication
  189. RITUXIMAB [Concomitant]
     Active Substance: RITUXIMAB
     Indication: Rheumatoid arthritis
     Route: 042
  190. STELARA [Concomitant]
     Active Substance: USTEKINUMAB
     Indication: Product used for unknown indication
     Route: 058
  191. TOCILIZUMAB [Concomitant]
     Active Substance: TOCILIZUMAB
     Indication: Product used for unknown indication
     Route: 058
  192. TOFACITINIB CITRATE [Concomitant]
     Active Substance: TOFACITINIB CITRATE
     Indication: Product used for unknown indication

REACTIONS (128)
  - Abdominal discomfort [Not Recovered/Not Resolved]
  - Abdominal distension [Unknown]
  - Abdominal pain upper [Not Recovered/Not Resolved]
  - Alopecia [Not Recovered/Not Resolved]
  - Anti-cyclic citrullinated peptide antibody positive [Not Recovered/Not Resolved]
  - Arthralgia [Not Recovered/Not Resolved]
  - Arthropathy [Not Recovered/Not Resolved]
  - Asthenia [Unknown]
  - Back injury [Unknown]
  - Blepharospasm [Unknown]
  - Blister [Not Recovered/Not Resolved]
  - Blood cholesterol increased [Not Recovered/Not Resolved]
  - Breast cancer stage III [Unknown]
  - Bursitis [Unknown]
  - C-reactive protein abnormal [Unknown]
  - C-reactive protein increased [Unknown]
  - Coeliac disease [Unknown]
  - Condition aggravated [Not Recovered/Not Resolved]
  - Confusional state [Not Recovered/Not Resolved]
  - Depression [Unknown]
  - Diarrhoea [Not Recovered/Not Resolved]
  - Dizziness [Not Recovered/Not Resolved]
  - Drug hypersensitivity [Not Recovered/Not Resolved]
  - Drug-induced liver injury [Unknown]
  - Dry mouth [Unknown]
  - Duodenal ulcer perforation [Not Recovered/Not Resolved]
  - Dyspepsia [Unknown]
  - Epilepsy [Unknown]
  - Facet joint syndrome [Unknown]
  - Fall [Unknown]
  - Fatigue [Not Recovered/Not Resolved]
  - Fibromyalgia [Not Recovered/Not Resolved]
  - Finger deformity [Unknown]
  - Folliculitis [Not Recovered/Not Resolved]
  - Gait inability [Unknown]
  - Gastrointestinal disorder [Not Recovered/Not Resolved]
  - Gastrooesophageal reflux disease [Unknown]
  - General physical health deterioration [Not Recovered/Not Resolved]
  - Glossodynia [Not Recovered/Not Resolved]
  - Grip strength decreased [Unknown]
  - Hand deformity [Not Recovered/Not Resolved]
  - Headache [Not Recovered/Not Resolved]
  - Helicobacter infection [Not Recovered/Not Resolved]
  - Hepatic enzyme increased [Not Recovered/Not Resolved]
  - Hepatitis [Unknown]
  - Hypercholesterolaemia [Unknown]
  - Hypersensitivity [Not Recovered/Not Resolved]
  - Hypertension [Not Recovered/Not Resolved]
  - Hypoaesthesia [Unknown]
  - Impaired healing [Not Recovered/Not Resolved]
  - Inflammation [Unknown]
  - Infusion related reaction [Not Recovered/Not Resolved]
  - Injection site reaction [Unknown]
  - Injury [Not Recovered/Not Resolved]
  - Insomnia [Unknown]
  - Irritable bowel syndrome [Not Recovered/Not Resolved]
  - Joint range of motion decreased [Unknown]
  - Joint swelling [Not Recovered/Not Resolved]
  - Lip dry [Unknown]
  - Liver function test increased [Unknown]
  - Liver injury [Not Recovered/Not Resolved]
  - Loss of personal independence in daily activities [Unknown]
  - Lower respiratory tract infection [Not Recovered/Not Resolved]
  - Lung disorder [Unknown]
  - Malaise [Unknown]
  - Memory impairment [Unknown]
  - Migraine [Unknown]
  - Mobility decreased [Unknown]
  - Muscle injury [Not Recovered/Not Resolved]
  - Muscle spasms [Unknown]
  - Muscular weakness [Unknown]
  - Musculoskeletal stiffness [Not Recovered/Not Resolved]
  - Nail disorder [Unknown]
  - Nasopharyngitis [Not Recovered/Not Resolved]
  - Nausea [Not Recovered/Not Resolved]
  - Neck pain [Unknown]
  - Night sweats [Unknown]
  - Obesity [Unknown]
  - Onychomadesis [Unknown]
  - Onychomycosis [Unknown]
  - Osteoarthritis [Unknown]
  - Pain [Not Recovered/Not Resolved]
  - Pain in extremity [Unknown]
  - Paraesthesia [Unknown]
  - Pemphigus [Not Recovered/Not Resolved]
  - Pericarditis [Not Recovered/Not Resolved]
  - Peripheral swelling [Unknown]
  - Pneumonia [Unknown]
  - Psoriatic arthropathy [Not Recovered/Not Resolved]
  - Rash [Not Recovered/Not Resolved]
  - Rheumatic fever [Not Recovered/Not Resolved]
  - Rheumatoid arthritis [Not Recovered/Not Resolved]
  - Sleep disorder [Unknown]
  - Stomatitis [Unknown]
  - Swelling [Unknown]
  - Synovitis [Unknown]
  - Systemic lupus erythematosus [Not Recovered/Not Resolved]
  - Adverse event [Unknown]
  - Hospitalisation [Unknown]
  - Off label use [Unknown]
  - Prescribed underdose [Unknown]
  - Abdominal pain [Not Recovered/Not Resolved]
  - Chest pain [Not Recovered/Not Resolved]
  - Discomfort [Not Recovered/Not Resolved]
  - Drug ineffective [Unknown]
  - Drug intolerance [Unknown]
  - Dyspnoea [Not Recovered/Not Resolved]
  - Lupus vulgaris [Not Recovered/Not Resolved]
  - Type 2 diabetes mellitus [Not Recovered/Not Resolved]
  - Eye injury [Not Recovered/Not Resolved]
  - Ill-defined disorder [Not Recovered/Not Resolved]
  - Infection [Not Recovered/Not Resolved]
  - Liver disorder [Not Recovered/Not Resolved]
  - Oedema [Not Recovered/Not Resolved]
  - Pruritus [Not Recovered/Not Resolved]
  - Rheumatoid factor positive [Not Recovered/Not Resolved]
  - Swelling [Not Recovered/Not Resolved]
  - Swollen joint count increased [Not Recovered/Not Resolved]
  - Synovitis [Not Recovered/Not Resolved]
  - Therapeutic product effect decreased [Not Recovered/Not Resolved]
  - Therapeutic response decreased [Not Recovered/Not Resolved]
  - Therapy non-responder [Not Recovered/Not Resolved]
  - Treatment failure [Not Recovered/Not Resolved]
  - Ulcer haemorrhage [Not Recovered/Not Resolved]
  - Urticaria [Not Recovered/Not Resolved]
  - Vomiting [Not Recovered/Not Resolved]
  - Wheezing [Not Recovered/Not Resolved]
  - Wound [Not Recovered/Not Resolved]
